FAERS Safety Report 23196383 (Version 1)
Quarter: 2023Q4

REPORT INFORMATION
  Report Type: Spontaneous
  Country: US (occurrence: None)
  Receive Date: 20231116
  Receipt Date: 20231116
  Transmission Date: 20240110
  Serious: Yes (Life-Threatening)
  Sender: FDA-Public Use
  Company Number: None

PATIENT
  Age: 48 Year
  Sex: Female
  Weight: 81 kg

DRUGS (1)
  1. OZEMPIC [Suspect]
     Active Substance: SEMAGLUTIDE
     Indication: Type 2 diabetes mellitus
     Dosage: OTHER STRENGTH : 0.5MG AND 1MG ;?
     Dates: start: 20230201, end: 20230918

REACTIONS (4)
  - Gastrooesophageal reflux disease [None]
  - Lung transplant [None]
  - Upper respiratory tract infection [None]
  - Lung transplant rejection [None]

NARRATIVE: CASE EVENT DATE: 20230918
